FAERS Safety Report 20568664 (Version 1)
Quarter: 2022Q1

REPORT INFORMATION
  Report Type: Spontaneous
  Country: SE (occurrence: SE)
  Receive Date: 20220308
  Receipt Date: 20220308
  Transmission Date: 20220423
  Serious: Yes (Hospitalization)
  Sender: FDA-Public Use
  Company Number: SE-CELGENE-SWE-20220204193

PATIENT
  Age: 62 Year
  Sex: Male
  Weight: 125.7 kg

DRUGS (15)
  1. RITUXIMAB [Suspect]
     Active Substance: RITUXIMAB
     Indication: Follicular lymphoma
     Dosage: 375 MG/M2
     Route: 065
     Dates: start: 20220104
  2. LENALIDOMIDE [Suspect]
     Active Substance: LENALIDOMIDE
     Indication: Follicular lymphoma
     Dosage: 20 MG, 1X/DAY (20 MILLIGRAM)
     Route: 048
     Dates: start: 20211123
  3. LENALIDOMIDE [Suspect]
     Active Substance: LENALIDOMIDE
     Dosage: 20 MG, 1X/DAY (20 MILLIGRAM)
     Route: 048
     Dates: start: 20220114
  4. EPCORITAMAB [Suspect]
     Active Substance: EPCORITAMAB
     Indication: Follicular lymphoma
     Dosage: 0.16 MG
     Route: 065
     Dates: start: 20211207
  5. EPCORITAMAB [Suspect]
     Active Substance: EPCORITAMAB
     Dosage: 0.8 MG
     Route: 065
     Dates: start: 20211214
  6. EPCORITAMAB [Suspect]
     Active Substance: EPCORITAMAB
     Dosage: 48 MG
     Route: 065
     Dates: start: 20211221
  7. EPCORITAMAB [Suspect]
     Active Substance: EPCORITAMAB
     Dosage: UNK
     Route: 065
     Dates: start: 20220111
  8. SULFAMETHOXAZOLE\TRIMETHOPRIM [Suspect]
     Active Substance: SULFAMETHOXAZOLE\TRIMETHOPRIM
     Indication: Pneumocystis jirovecii infection
     Dosage: 3 DF, 1X/DAY (800/60 MG)
     Route: 065
     Dates: start: 20220117
  9. POTASSIUM CHLORIDE [Concomitant]
     Active Substance: POTASSIUM CHLORIDE
     Dosage: UNK
     Route: 065
     Dates: start: 20220126, end: 20220127
  10. PIPERACILLIN [Concomitant]
     Active Substance: PIPERACILLIN
     Dosage: UNK
     Route: 065
     Dates: start: 20220111, end: 20220112
  11. SITAGLIPTIN [Concomitant]
     Active Substance: SITAGLIPTIN
     Dosage: UNK
     Route: 065
  12. METFORMIN [Concomitant]
     Active Substance: METFORMIN HYDROCHLORIDE
     Dosage: UNK
     Route: 065
  13. OXYGEN [Concomitant]
     Active Substance: OXYGEN
     Dosage: UNK
     Route: 065
     Dates: start: 20220117, end: 20220120
  14. TAZOBACTAM [Concomitant]
     Active Substance: TAZOBACTAM
     Dosage: UNK
     Route: 065
  15. CALCIUM CHLORIDE [Concomitant]
     Active Substance: CALCIUM CHLORIDE
     Dosage: UNK
     Route: 065
     Dates: start: 20220126, end: 20220127

REACTIONS (4)
  - Cytokine release syndrome [Recovered/Resolved]
  - Pneumocystis jirovecii infection [Recovering/Resolving]
  - Diarrhoea [Not Recovered/Not Resolved]
  - Dehydration [Not Recovered/Not Resolved]

NARRATIVE: CASE EVENT DATE: 20220111
